FAERS Safety Report 12974022 (Version 2)
Quarter: 2016Q4

REPORT INFORMATION
  Report Type: Spontaneous
  Country: RO (occurrence: RO)
  Receive Date: 20161124
  Receipt Date: 20161206
  Transmission Date: 20170207
  Serious: Yes (Hospitalization, Other)
  Sender: FDA-Public Use
  Company Number: RO-MACLEODS PHARMACEUTICALS US LTD-MAC2016003579

PATIENT

DRUGS (8)
  1. COLISTIN [Concomitant]
     Active Substance: COLISTIN
     Indication: PNEUMONIA PSEUDOMONAL
     Dosage: UNK
     Route: 065
  2. COLISTIN [Concomitant]
     Active Substance: COLISTIN
     Indication: PNEUMONIA
  3. LEVOFLOXACIN. [Suspect]
     Active Substance: LEVOFLOXACIN
     Indication: PNEUMONIA PSEUDOMONAL
     Dosage: 500 MG, QD
     Route: 065
  4. CISPLATIN. [Suspect]
     Active Substance: CISPLATIN
     Indication: OROPHARYNGEAL SQUAMOUS CELL CARCINOMA
     Dosage: UNK, CYCLICAL
     Route: 065
  5. DOCETAXEL. [Concomitant]
     Active Substance: DOCETAXEL
     Indication: OROPHARYNGEAL SQUAMOUS CELL CARCINOMA
     Dosage: UNK, CYCLICAL
     Route: 065
  6. CAPECITABINE. [Concomitant]
     Active Substance: CAPECITABINE
     Indication: OROPHARYNGEAL SQUAMOUS CELL CARCINOMA
     Dosage: UNK, CYCLICAL
     Route: 065
  7. AMIKACIN [Concomitant]
     Active Substance: AMIKACIN
     Indication: PNEUMONIA
  8. AMIKACIN [Concomitant]
     Active Substance: AMIKACIN
     Indication: PNEUMONIA PSEUDOMONAL
     Dosage: UNK
     Route: 065

REACTIONS (7)
  - Dizziness [Recovered/Resolved]
  - Psychomotor hyperactivity [Recovered/Resolved]
  - Hyponatraemia [Recovered/Resolved]
  - Disorientation [Recovered/Resolved]
  - Inappropriate antidiuretic hormone secretion [Recovered/Resolved]
  - Delirium [Recovered/Resolved]
  - Hallucinations, mixed [Recovered/Resolved]
